FAERS Safety Report 9574721 (Version 2)
Quarter: 2013Q4

REPORT INFORMATION
  Report Type: Spontaneous
  Country: US (occurrence: US)
  Receive Date: 20131001
  Receipt Date: 20131001
  Transmission Date: 20140711
  Serious: Yes (Life-Threatening, Hospitalization)
  Sender: FDA-Public Use
  Company Number: US-NAPPMUNDI-USA-2012-0084425

PATIENT
  Sex: Male
  Weight: 122.45 kg

DRUGS (2)
  1. BUTRANS [Suspect]
     Indication: BACK PAIN
     Dosage: 10 UNK, UNK
     Route: 062
     Dates: start: 20120209, end: 20120212
  2. NORCO [Concomitant]
     Indication: PAIN
     Dosage: UNK, SEE TEXT

REACTIONS (5)
  - Dyspnoea [Unknown]
  - Unevaluable event [Unknown]
  - Discomfort [Unknown]
  - Palpitations [Unknown]
  - Hyperhidrosis [Unknown]
